FAERS Safety Report 7220612-X (Version None)
Quarter: 2011Q1

REPORT INFORMATION
  Report Type: 
  Country: None (occurrence: None)
  Receive Date: 20110111
  Receipt Date: 20110104
  Transmission Date: 20110831
  Serious: Yes (Hospitalization, Disabling)
  Sender: FDA-Public Use
  Company Number: BR-PFIZER INC-2011001479

PATIENT
  Age: 30 Year
  Sex: Female
  Weight: 60 kg

DRUGS (2)
  1. ZITHROMAX [Suspect]
     Dosage: UNK
     Route: 042
     Dates: start: 20101230, end: 20110103
  2. DIPYRONE [Concomitant]
     Dosage: UNK

REACTIONS (1)
  - RASH MACULAR [None]
